FAERS Safety Report 17971224 (Version 2)
Quarter: 2020Q3

REPORT INFORMATION
  Report Type: Spontaneous
  Country: US (occurrence: US)
  Receive Date: 20200701
  Receipt Date: 20200724
  Transmission Date: 20201103
  Serious: Yes (Other)
  Sender: FDA-Public Use
  Company Number: US-ASTRAZENECA-2020SE81299

PATIENT
  Sex: Female
  Weight: 108.9 kg

DRUGS (3)
  1. BYDUREON [Suspect]
     Active Substance: EXENATIDE
     Indication: GLUCOSE TOLERANCE IMPAIRED
     Route: 058
  2. BYDUREON BCISE [Suspect]
     Active Substance: EXENATIDE
     Indication: INSULIN RESISTANCE
     Route: 058
  3. UNITHROID [Concomitant]
     Active Substance: LEVOTHYROXINE SODIUM
     Indication: THYROID DISORDER

REACTIONS (7)
  - Abdominal pain [Recovered/Resolved]
  - Pancreatitis [Unknown]
  - Device leakage [Unknown]
  - Device malfunction [Unknown]
  - Weight decreased [Recovered/Resolved]
  - Injection site nodule [Unknown]
  - Frequent bowel movements [Unknown]
